FAERS Safety Report 17299294 (Version 1)
Quarter: 2020Q1

REPORT INFORMATION
  Report Type: Spontaneous
  Country: US (occurrence: US)
  Receive Date: 20200121
  Receipt Date: 20200121
  Transmission Date: 20200409
  Serious: No
  Sender: FDA-Public Use
  Company Number: None

PATIENT
  Sex: Female
  Weight: 69.5 kg

DRUGS (10)
  1. ACETAMINOPHEN ER 650MG [Concomitant]
  2. ONDANSETRON HCL 8MG [Concomitant]
     Active Substance: ONDANSETRON
  3. GABAPENTIN 400MG [Concomitant]
     Active Substance: GABAPENTIN
  4. LORATADINE 10MG [Concomitant]
     Active Substance: LORATADINE
  5. OLANZAPINE. [Concomitant]
     Active Substance: OLANZAPINE
  6. VELCADE [Concomitant]
     Active Substance: BORTEZOMIB
  7. TRAMADOL HYDROCHLORIDE. [Concomitant]
     Active Substance: TRAMADOL HYDROCHLORIDE
  8. VARUBI 180MG [Concomitant]
  9. XPOVIO [Suspect]
     Active Substance: SELINEXOR
     Indication: PLASMA CELL MYELOMA
     Dosage: ?          OTHER FREQUENCY:ONCE A WEEK;?
     Route: 048
     Dates: start: 20191223, end: 20200121
  10. ACYCLOVIR 800MG [Concomitant]
     Active Substance: ACYCLOVIR

REACTIONS (1)
  - Transplant [None]
